FAERS Safety Report 4367968-3 (Version None)
Quarter: 2004Q2

REPORT INFORMATION
  Report Type: 
  Country: None (occurrence: None)
  Receive Date: 20040602
  Receipt Date: 20040525
  Transmission Date: 20050107
  Serious: Yes (Other)
  Sender: FDA-Public Use
  Company Number: 200414049US

PATIENT
  Age: 68 Year
  Sex: Male
  Weight: 92 kg

DRUGS (4)
  1. DOCETAXEL [Suspect]
     Indication: PANCREATIC CARCINOMA
     Route: 042
     Dates: start: 20040406
  2. IRINOTECAN [Suspect]
     Indication: PANCREATIC CARCINOMA
     Route: 042
     Dates: start: 20040406
  3. CETUXIMAB [Suspect]
     Indication: PANCREATIC CARCINOMA
     Dosage: DOSE: LOADING DOSE
     Route: 042
     Dates: start: 20040202, end: 20040202
  4. LOVENOX [Concomitant]
     Route: 058
     Dates: end: 20040415

REACTIONS (1)
  - BLOOD MAGNESIUM DECREASED [None]
